FAERS Safety Report 4815292-4 (Version None)
Quarter: 2005Q4

REPORT INFORMATION
  Report Type: 
  Country: None (occurrence: None)
  Receive Date: 20051027
  Receipt Date: 20051013
  Transmission Date: 20060501
  Serious: Yes (Hospitalization, Other)
  Sender: FDA-Public Use
  Company Number: 2005BI019043

PATIENT
  Age: 55 Year
  Sex: Male
  Weight: 119.296 kg

DRUGS (3)
  1. AVONEX [Suspect]
     Indication: MULTIPLE SCLEROSIS
     Dosage: 30 UG; QW; IM
     Route: 030
     Dates: start: 20020101, end: 20050701
  2. XANAX [Concomitant]
  3. COUMADIN [Concomitant]

REACTIONS (6)
  - BACK PAIN [None]
  - BEDRIDDEN [None]
  - GASTRIC PERFORATION [None]
  - INFLUENZA LIKE ILLNESS [None]
  - POST PROCEDURAL COMPLICATION [None]
  - TUBERCULOSIS [None]
